FAERS Safety Report 6552396-2 (Version None)
Quarter: 2010Q1

REPORT INFORMATION
  Report Type: 
  Country: None (occurrence: None)
  Receive Date: 20100126
  Receipt Date: 20100118
  Transmission Date: 20100710
  Serious: Yes (Other)
  Sender: FDA-Public Use
  Company Number: GB-PFIZER INC-2009311928

PATIENT
  Age: 47 Year
  Sex: Female

DRUGS (3)
  1. PHENYTOIN SODIUM CAP [Suspect]
     Indication: EPILEPSY
     Dosage: 25 UL, 2X/DAY
     Route: 048
     Dates: start: 20091123, end: 20091214
  2. PHENYTOIN SODIUM CAP [Suspect]
     Dosage: 25 UL, 2X/DAY
  3. FOLIC ACID [Concomitant]
     Indication: FOLATE DEFICIENCY
     Dosage: 400 MG, 1X/DAY
     Route: 048
     Dates: start: 20091029

REACTIONS (1)
  - PALPITATIONS [None]
